FAERS Safety Report 20018575 (Version 3)
Quarter: 2022Q1

REPORT INFORMATION
  Report Type: Spontaneous
  Country: US (occurrence: US)
  Receive Date: 20211101
  Receipt Date: 20220126
  Transmission Date: 20220423
  Serious: Yes (Other)
  Sender: FDA-Public Use
  Company Number: US-BAYER-2021A239385

PATIENT
  Age: 48 Year
  Sex: Female

DRUGS (1)
  1. KYLEENA [Suspect]
     Active Substance: LEVONORGESTREL
     Indication: Contraception
     Dosage: 17.5?G/DAY
     Route: 015
     Dates: start: 20190429, end: 20211008

REACTIONS (3)
  - Uterine perforation [Recovered/Resolved]
  - Genital haemorrhage [None]
  - Menstruation irregular [None]

NARRATIVE: CASE EVENT DATE: 20210601
